FAERS Safety Report 8389856-8 (Version None)
Quarter: 2012Q2

REPORT INFORMATION
  Report Type: 
  Country: None (occurrence: None)
  Receive Date: 20120522
  Receipt Date: 20120510
  Transmission Date: 20120825
  Serious: Yes (Hospitalization)
  Sender: FDA-Public Use
  Company Number: 2012SP025413

PATIENT
  Age: 59 Year
  Sex: Male

DRUGS (3)
  1. KLONOPIN [Concomitant]
  2. SAPHRIS [Suspect]
     Indication: BIPOLAR I DISORDER
     Dosage: 10 MG;BID;SL
     Route: 060
     Dates: start: 20120101, end: 20120503
  3. TRAZODONE HCL [Concomitant]

REACTIONS (1)
  - DEEP VEIN THROMBOSIS [None]
